FAERS Safety Report 6883193-6 (Version None)
Quarter: 2010Q3

REPORT INFORMATION
  Report Type: 
  Country: None (occurrence: None)
  Receive Date: 20100708
  Receipt Date: 20091006
  Transmission Date: 20110219
  Serious: Yes (Other)
  Sender: FDA-Public Use
  Company Number: 2009282423

PATIENT
  Age: 54 Year
  Sex: Female
  Weight: 88.5 kg

DRUGS (4)
  1. CHANTIX [Suspect]
     Indication: SMOKING CESSATION THERAPY
     Dosage: 0.5 MG, 1X/DAY, ORAL
     Route: 048
     Dates: start: 20090615, end: 20090930
  2. WELLBUTRIN [Suspect]
  3. DEPAKOTE [Suspect]
  4. ALCOHOL (ETHANOL) [Suspect]

REACTIONS (4)
  - ABNORMAL DREAMS [None]
  - INTENTIONAL OVERDOSE [None]
  - SOMNAMBULISM [None]
  - SUICIDE ATTEMPT [None]
